FAERS Safety Report 8682165 (Version 2)
Quarter: 2012Q4

REPORT INFORMATION
  Report Type: Report from Study
  Country: DE (occurrence: DE)
  Receive Date: 20120725
  Receipt Date: 20120910
  Transmission Date: 20130627
  Serious: Yes (Hospitalization)
  Sender: FDA-Public Use
  Company Number: DE-ROCHE-1089769

PATIENT
  Sex: Female

DRUGS (7)
  1. MABTHERA [Suspect]
     Indication: B-CELL LYMPHOMA
     Route: 042
     Dates: start: 20120704, end: 20120704
  2. CYCLOPHOSPHAMIDE [Suspect]
     Indication: B-CELL LYMPHOMA
     Route: 042
     Dates: start: 20120705, end: 20120705
  3. DOXORUBICIN/DOXORUBICIN HYDROCHLORIDE [Suspect]
     Indication: B-CELL LYMPHOMA
     Route: 042
     Dates: start: 20120705, end: 20120705
  4. NEULASTA [Suspect]
     Indication: B-CELL LYMPHOMA
     Route: 058
     Dates: start: 20120708, end: 20120708
  5. VINCRISTINE [Suspect]
     Indication: B-CELL LYMPHOMA
     Route: 042
     Dates: start: 20120705, end: 20120705
  6. PREDNISOLONE [Suspect]
     Indication: B-CELL LYMPHOMA
     Route: 048
     Dates: start: 20120705, end: 20120709
  7. CANDESARTAN CILEXETIL [Concomitant]
     Indication: HYPERTENSION

REACTIONS (1)
  - Neutropenic colitis [Recovered/Resolved with Sequelae]
